FAERS Safety Report 8758404 (Version 1)
Quarter: 2012Q4

REPORT INFORMATION
  Report Type: Spontaneous
  Country: US (occurrence: None)
  Receive Date: 20120828
  Receipt Date: 20120828
  Transmission Date: 20130627
  Serious: Yes (Other)
  Sender: FDA-Public Use
  Company Number: None

PATIENT
  Age: 57 Year
  Sex: Male
  Weight: 102.06 kg

DRUGS (1)
  1. CRESTOR [Suspect]
     Indication: HIGH CHOLESTEROL
     Route: 048
     Dates: start: 20050601, end: 20120701

REACTIONS (3)
  - Amnestic disorder [None]
  - Cognitive disorder [None]
  - Memory impairment [None]
